FAERS Safety Report 9158169 (Version 2)
Quarter: 2013Q1

REPORT INFORMATION
  Report Type: Spontaneous
  Country: JP (occurrence: JP)
  Receive Date: 20130312
  Receipt Date: 20130320
  Transmission Date: 20140127
  Serious: Yes (Hospitalization, Other)
  Sender: FDA-Public Use
  Company Number: JP-ROCHE-1198833

PATIENT
  Age: 19 Year
  Sex: Male

DRUGS (1)
  1. TAMIFLU [Suspect]
     Indication: PRODUCT USED FOR UNKNOWN INDICATION
     Dosage: DOSAGE IS UNCERTAIN
     Route: 048
     Dates: start: 20130122, end: 20130127

REACTIONS (8)
  - Insomnia [Recovered/Resolved]
  - Judgement impaired [Unknown]
  - Abnormal behaviour [Unknown]
  - Hypoaesthesia [Unknown]
  - Haematochezia [Unknown]
  - Decreased appetite [Unknown]
  - Abnormal faeces [Unknown]
  - Hypothermia [Unknown]
